FAERS Safety Report 11837922 (Version 2)
Quarter: 2016Q2

REPORT INFORMATION
  Report Type: Spontaneous
  Country: JP (occurrence: JP)
  Receive Date: 20151215
  Receipt Date: 20160615
  Transmission Date: 20160815
  Serious: Yes (Other)
  Sender: FDA-Public Use
  Company Number: JP-OTSUKA-2015_016182

PATIENT
  Age: 95 Year
  Sex: Female

DRUGS (2)
  1. SAMSCA [Suspect]
     Active Substance: TOLVAPTAN
     Indication: OEDEMA DUE TO CARDIAC DISEASE
     Dosage: 15 MG, DAILY DOSE
     Route: 048
     Dates: start: 20121108, end: 20121110
  2. SAMSCA [Suspect]
     Active Substance: TOLVAPTAN
     Indication: OEDEMA DUE TO CARDIAC DISEASE
     Dosage: 7.5 MG, DAILY DOSE
     Route: 048
     Dates: start: 20121111, end: 20121116

REACTIONS (1)
  - Blood sodium increased [Not Recovered/Not Resolved]

NARRATIVE: CASE EVENT DATE: 20121109
